FAERS Safety Report 11725340 (Version 2)
Quarter: 2016Q1

REPORT INFORMATION
  Report Type: Spontaneous
  Country: US (occurrence: US)
  Receive Date: 20151110
  Receipt Date: 20160309
  Transmission Date: 20160525
  Serious: Yes (Other)
  Sender: FDA-Public Use
  Company Number: US-ELI_LILLY_AND_COMPANY-US201109007599

PATIENT
  Sex: Female

DRUGS (9)
  1. FORTEO [Suspect]
     Active Substance: TERIPARATIDE
     Indication: OSTEOARTHRITIS
     Dosage: 20 UG, QD
     Route: 065
     Dates: start: 2011
  2. FORTEO [Suspect]
     Active Substance: TERIPARATIDE
     Dosage: 20 UG, QD
     Route: 065
  3. CLARITIN [Concomitant]
     Active Substance: LORATADINE
  4. VITAMIN D [Concomitant]
     Active Substance: CHOLECALCIFEROL
  5. VITAMIN B12 [Concomitant]
     Active Substance: CYANOCOBALAMIN
  6. PREDNISONE. [Concomitant]
     Active Substance: PREDNISONE
  7. ZANTAC [Concomitant]
     Active Substance: RANITIDINE HYDROCHLORIDE
  8. PROBIOTICS                         /07325001/ [Concomitant]
     Active Substance: BIFIDOBACTERIUM LONGUM\LACTOBACILLUS ACIDOPHILUS\LACTOBACILLUS RHAMNOSUS
  9. PRILOSEC [Concomitant]
     Active Substance: OMEPRAZOLE MAGNESIUM

REACTIONS (9)
  - Heart rate increased [Unknown]
  - Hypoxia [Recovering/Resolving]
  - Pulmonary fibrosis [Unknown]
  - Arthralgia [Recovering/Resolving]
  - Calcinosis [Unknown]
  - Lung disorder [Unknown]
  - Injection site pain [Unknown]
  - Off label use [Unknown]
  - Influenza like illness [Recovering/Resolving]

NARRATIVE: CASE EVENT DATE: 2011
